FAERS Safety Report 24388392 (Version 1)
Quarter: 2024Q4

REPORT INFORMATION
  Report Type: Spontaneous
  Country: HR (occurrence: HR)
  Receive Date: 20241002
  Receipt Date: 20241002
  Transmission Date: 20250115
  Serious: Yes (Other)
  Sender: BAYER
  Company Number: None

PATIENT
  Sex: Female

DRUGS (5)
  1. LORATADINE [Suspect]
     Active Substance: LORATADINE
     Dosage: 100 MG, QD
     Route: 048
     Dates: start: 202408, end: 202408
  2. ZOLOFT [Suspect]
     Active Substance: SERTRALINE HYDROCHLORIDE
     Dosage: 1500 MG, QD
     Route: 048
     Dates: start: 202408, end: 202408
  3. BROMAZEPAM [Suspect]
     Active Substance: BROMAZEPAM
     Dosage: 30 MG, QD
     Route: 048
     Dates: start: 202408, end: 202408
  4. CETIRIZINE HYDROCHLORIDE [Suspect]
     Active Substance: CETIRIZINE HYDROCHLORIDE
     Dosage: 100 MG, QD
     Route: 048
     Dates: start: 202408, end: 202408
  5. ALPRAZOLAM [Suspect]
     Active Substance: ALPRAZOLAM
     Dosage: 15 MG, QD
     Route: 048
     Dates: start: 202408, end: 202408

REACTIONS (4)
  - Tachycardia [Unknown]
  - Somnolence [Unknown]
  - Intentional overdose [Unknown]
  - Suicide attempt [Unknown]

NARRATIVE: CASE EVENT DATE: 20240801
